FAERS Safety Report 12098638 (Version 1)
Quarter: 2016Q1

REPORT INFORMATION
  Report Type: Spontaneous
  Country: US (occurrence: US)
  Receive Date: 20160222
  Receipt Date: 20160222
  Transmission Date: 20160526
  Serious: Yes (Other)
  Sender: FDA-Public Use
  Company Number: US-BEH-2016058855

PATIENT
  Sex: Female
  Weight: 78 kg

DRUGS (17)
  1. PRILOSEC [Concomitant]
     Active Substance: OMEPRAZOLE MAGNESIUM
  2. ACETAMINOPHEN. [Concomitant]
     Active Substance: ACETAMINOPHEN
  3. DIPHENHYDRAMINE. [Concomitant]
     Active Substance: DIPHENHYDRAMINE
  4. ASPIRIN. [Concomitant]
     Active Substance: ASPIRIN
  5. LIDOCAINE. [Concomitant]
     Active Substance: LIDOCAINE
  6. SYMBICORT [Concomitant]
     Active Substance: BUDESONIDE\FORMOTEROL FUMARATE DIHYDRATE
  7. CALCIUM [Concomitant]
     Active Substance: CALCIUM
  8. EPIPEN [Concomitant]
     Active Substance: EPINEPHRINE
  9. OXYCODONE [Concomitant]
     Active Substance: OXYCODONE
  10. CYCLOBENZAPRINE [Concomitant]
     Active Substance: CYCLOBENZAPRINE
  11. NASONEX [Concomitant]
     Active Substance: MOMETASONE FUROATE
  12. VITAMIN D [Concomitant]
     Active Substance: CHOLECALCIFEROL
  13. HIZENTRA [Suspect]
     Active Substance: HUMAN IMMUNOGLOBULIN G
     Indication: SELECTIVE IGG SUBCLASS DEFICIENCY
     Dosage: 4 GM 20 ML VIALS
     Route: 058
     Dates: start: 20140814
  14. IPRATROPIUM [Concomitant]
     Active Substance: IPRATROPIUM
  15. MORPHINE [Concomitant]
     Active Substance: MORPHINE
  16. XOPENEX [Concomitant]
     Active Substance: LEVALBUTEROL HYDROCHLORIDE
  17. IBUPROFEN. [Concomitant]
     Active Substance: IBUPROFEN

REACTIONS (1)
  - Coccidioidomycosis [Not Recovered/Not Resolved]
